FAERS Safety Report 7965963-6 (Version None)
Quarter: 2011Q4

REPORT INFORMATION
  Report Type: 
  Country: None (occurrence: None)
  Receive Date: 20111208
  Receipt Date: 20111124
  Transmission Date: 20120403
  Serious: Yes (Other)
  Sender: FDA-Public Use
  Company Number: FR-PFIZER INC-2011237227

PATIENT
  Age: 62 Year
  Sex: Female

DRUGS (4)
  1. RAMIPRIL [Suspect]
     Indication: HYPERTENSION
     Dosage: 10 MG, DAILY
     Route: 048
     Dates: start: 20100301, end: 20110401
  2. HCT ^CT-ARZNEIMITTEL^ [Suspect]
     Dosage: 12.5 MG, 1X/DAY
  3. NOVAMINSULFON [Concomitant]
     Dosage: UNK
  4. VOLTAREN [Concomitant]
     Dosage: UNK

REACTIONS (4)
  - SKIN IRRITATION [None]
  - PRURITUS [None]
  - HYPOAESTHESIA [None]
  - PARAESTHESIA [None]
